FAERS Safety Report 7262597-6 (Version None)
Quarter: 2011Q1

REPORT INFORMATION
  Report Type: 
  Country: None (occurrence: None)
  Receive Date: 20110130
  Receipt Date: 20100908
  Transmission Date: 20110831
  Serious: No
  Sender: FDA-Public Use
  Company Number: US-ABBOTT-10P-163-0670488-00

PATIENT
  Sex: Female
  Weight: 81.72 kg

DRUGS (4)
  1. NEXIUM [Concomitant]
     Indication: PRODUCT USED FOR UNKNOWN INDICATION
  2. HUMIRA [Suspect]
     Indication: RHEUMATOID ARTHRITIS
     Dates: start: 20070101
  3. METHOTREXATE [Concomitant]
     Indication: RHEUMATOID ARTHRITIS
     Dates: start: 20070101
  4. CELEBREX [Concomitant]
     Indication: PRODUCT USED FOR UNKNOWN INDICATION
     Dates: start: 20090101

REACTIONS (5)
  - INCORRECT STORAGE OF DRUG [None]
  - PRURITUS GENERALISED [None]
  - INJECTION SITE HAEMORRHAGE [None]
  - POOR QUALITY DRUG ADMINISTERED [None]
  - INJECTION SITE HAEMATOMA [None]
